FAERS Safety Report 6470160-X (Version None)
Quarter: 2009Q4

REPORT INFORMATION
  Report Type: 
  Country: None (occurrence: None)
  Receive Date: 20091203
  Receipt Date: 20080922
  Transmission Date: 20100525
  Serious: Yes (Disabling)
  Sender: FDA-Public Use
  Company Number: IT-ELI_LILLY_AND_COMPANY-IT200712004867

PATIENT
  Age: 56 Year
  Sex: Female

DRUGS (6)
  1. CYMBALTA [Suspect]
     Indication: DEPRESSION
     Dosage: 30 MG, UNKNOWN
     Route: 065
     Dates: start: 20071115
  2. CYMBALTA [Suspect]
     Dosage: 60 MG, DAILY (1/D)
     Route: 048
     Dates: start: 20071203, end: 20071210
  3. CYMBALTA [Suspect]
     Dosage: 30 MG, UNKNOWN
     Route: 065
     Dates: start: 20071210
  4. CYMBALTA [Suspect]
     Dosage: 60 MG, UNKNOWN
     Route: 065
     Dates: start: 20080201
  5. ATENOLOL [Concomitant]
     Indication: HYPERTENSION
     Dosage: 100 MG, UNK
     Route: 048
  6. PROVISACOR [Concomitant]
     Indication: HYPERCHOLESTEROLAEMIA
     Dosage: 10 MG, UNK
     Route: 048

REACTIONS (4)
  - AGEUSIA [None]
  - FEELING ABNORMAL [None]
  - GLOSSODYNIA [None]
  - MALAISE [None]
